FAERS Safety Report 8516131-0 (Version None)
Quarter: 2012Q3

REPORT INFORMATION
  Report Type: 
  Country: None (occurrence: None)
  Receive Date: 20120717
  Receipt Date: 20120621
  Transmission Date: 20120928
  Serious: No
  Sender: FDA-Public Use
  Company Number: US-NOVEN-12US004830

PATIENT
  Sex: Female

DRUGS (11)
  1. TEMAZEPAM [Concomitant]
     Indication: INSOMNIA
     Dosage: 30 MG, UNK
     Route: 048
  2. PREDNISONE [Concomitant]
     Dosage: 5 MG, UNK
     Route: 048
  3. PROMETAZINA [Concomitant]
     Indication: NAUSEA
     Dosage: 25 MG, PRN
     Route: 048
  4. HYDROCODONE [Concomitant]
     Dosage: 5/325 2 TABLETS QD
     Route: 048
  5. FENTANYL [Suspect]
     Indication: PAIN
     Dosage: 25 UG/HR, UNK
     Route: 062
  6. DILTIAZEM [Concomitant]
     Indication: HYPERTENSION
     Dosage: 240 MG, UNK
     Route: 048
  7. SYNTHROID [Concomitant]
     Dosage: .075 MG, UNK
     Route: 048
  8. NEURONTIN [Concomitant]
     Indication: HEADACHE
     Dosage: 300 MG, QD 2 TABLETS
     Route: 048
  9. CALCIUM [Concomitant]
     Dosage: 100 MG, UNK
     Route: 048
  10. POTASSIUM CHLORIDE [Concomitant]
     Dosage: HALF A PILL
     Route: 048
  11. PREMARIN [Concomitant]
     Indication: HORMONE THERAPY
     Dosage: .625 MG, UNK
     Route: 048

REACTIONS (2)
  - PRURITUS GENERALISED [None]
  - ERYTHEMA [None]
